FAERS Safety Report 7840937 (Version 2)
Quarter: 2012Q4

REPORT INFORMATION
  Report Type: 
  Country: US (occurrence: US)
  Receive Date: 20110304
  Receipt Date: 20120914
  Transmission Date: 20130627
  Serious: No
  Sender: FDA-Public Use
  Company Number: US-BAYER-2011-017704

PATIENT
  Age: 31 None
  Sex: Female

DRUGS (1)
  1. MIRENA [Suspect]
     Indication: CONTRACEPTION
     Dosage: UNK
     Route: 015
     Dates: start: 201008, end: 20110217

REACTIONS (6)
  - Pregnancy with contraceptive device [None]
  - Headache [None]
  - Abdominal pain [None]
  - Dizziness [None]
  - Haemorrhage in pregnancy [None]
  - Breast tenderness [None]
